FAERS Safety Report 12183422 (Version 1)
Quarter: 2016Q1

REPORT INFORMATION
  Report Type: Spontaneous
  Country: ES (occurrence: ES)
  Receive Date: 20160316
  Receipt Date: 20160316
  Transmission Date: 20160526
  Serious: Yes (Other)
  Sender: FDA-Public Use
  Company Number: ES-ACTAVIS-2016-05743

PATIENT
  Age: 46 Year
  Sex: Female
  Weight: 64 kg

DRUGS (1)
  1. DOCETAXEL ACTAVIS [Suspect]
     Active Substance: DOCETAXEL
     Indication: BREAST CANCER
     Dosage: 130 MG, 1/ THREE WEEKS (80MG/M2 CADA 21 DIAS)
     Route: 041
     Dates: start: 20160208

REACTIONS (1)
  - Palmar-plantar erythrodysaesthesia syndrome [Not Recovered/Not Resolved]

NARRATIVE: CASE EVENT DATE: 20160208
